FAERS Safety Report 6609911-X (Version None)
Quarter: 2010Q1

REPORT INFORMATION
  Report Type: 
  Country: None (occurrence: None)
  Receive Date: 20100302
  Receipt Date: 20100226
  Transmission Date: 20100710
  Serious: Yes (Life-Threatening)
  Sender: FDA-Public Use
  Company Number: PHEH2010US02737

PATIENT
  Sex: Male

DRUGS (4)
  1. DIOVAN [Suspect]
     Dosage: 40 MG, UNK
  2. HYDROXYZINE [Concomitant]
  3. COREG [Concomitant]
  4. POTASSIUM [Concomitant]

REACTIONS (2)
  - CARDIAC FAILURE [None]
  - FEELING ABNORMAL [None]
